FAERS Safety Report 7171540-X (Version None)
Quarter: 2010Q4

REPORT INFORMATION
  Report Type: 
  Country: None (occurrence: None)
  Receive Date: 20101217
  Receipt Date: 20101206
  Transmission Date: 20110411
  Serious: Yes (Death)
  Sender: FDA-Public Use
  Company Number: JP-AMGEN-JPNSP2010008653

PATIENT

DRUGS (3)
  1. ENBREL [Suspect]
     Dosage: UNK
     Route: 058
     Dates: start: 20070412, end: 20101125
  2. ENBREL [Suspect]
     Dosage: 25 MG, 2X/WEEK
     Route: 058
     Dates: start: 20070416, end: 20101125
  3. RHEUMATREX [Suspect]
     Indication: RHEUMATOID ARTHRITIS
     Dosage: 4 MG, WEEKLY
     Route: 048
     Dates: end: 20101125

REACTIONS (1)
  - AORTIC ANEURYSM RUPTURE [None]
